FAERS Safety Report 24456631 (Version 1)
Quarter: 2024Q4

REPORT INFORMATION
  Report Type: Spontaneous
  Country: IL (occurrence: IL)
  Receive Date: 20241017
  Receipt Date: 20241017
  Transmission Date: 20250115
  Serious: Yes (Disabling)
  Sender: BIOGEN
  Company Number: IL-BIOGEN-2024BI01286782

PATIENT
  Age: 67 Year
  Sex: Male

DRUGS (1)
  1. DALFAMPRIDINE [Suspect]
     Active Substance: DALFAMPRIDINE
     Indication: Product used for unknown indication
     Route: 050
     Dates: start: 20240701

REACTIONS (2)
  - Muscular weakness [Unknown]
  - Fall [Recovered/Resolved]
